FAERS Safety Report 24837256 (Version 1)
Quarter: 2025Q1

REPORT INFORMATION
  Report Type: Spontaneous
  Country: US (occurrence: US)
  Receive Date: 20250113
  Receipt Date: 20250113
  Transmission Date: 20250408
  Serious: No
  Sender: ROCHE
  Company Number: US-ROCHE-10000178098

PATIENT
  Age: 78 Year
  Sex: Female
  Weight: 81.19 kg

DRUGS (3)
  1. AVASTIN [Suspect]
     Active Substance: BEVACIZUMAB
     Indication: Product used for unknown indication
     Route: 065
  2. LONSURF [Suspect]
     Active Substance: TIPIRACIL HYDROCHLORIDE\TRIFLURIDINE
     Indication: Colon cancer
     Route: 048
  3. LONSURF [Suspect]
     Active Substance: TIPIRACIL HYDROCHLORIDE\TRIFLURIDINE
     Dosage: LONSURF: AT A DOSE OF 70 MG TWICE DAILY ON DAY 1-5 AND 15-19 OF A 28 DAY CYCLE.
     Route: 048

REACTIONS (1)
  - Back pain [Recovering/Resolving]
